FAERS Safety Report 5898901-0 (Version None)
Quarter: 2008Q3

REPORT INFORMATION
  Report Type: 
  Country: None (occurrence: None)
  Receive Date: 20080925
  Receipt Date: 20080918
  Transmission Date: 20090109
  Serious: Yes (Hospitalization)
  Sender: FDA-Public Use
  Company Number: JP-AVENTIS-200812171JP

PATIENT
  Age: 58 Year
  Sex: Male
  Weight: 60.8 kg

DRUGS (4)
  1. TAXOTERE [Suspect]
     Indication: OESOPHAGEAL CARCINOMA RECURRENT
     Route: 041
     Dates: start: 20080714, end: 20080714
  2. CIPROFLOXACIN HCL [Concomitant]
     Route: 048
     Dates: start: 20080701, end: 20080708
  3. NEU-UP [Concomitant]
     Route: 058
     Dates: start: 20080701, end: 20080704
  4. SEROTONE [Concomitant]
     Indication: PREMEDICATION
     Dates: start: 20080714, end: 20080714

REACTIONS (1)
  - HYPERCALCAEMIA [None]
